FAERS Safety Report 12555874 (Version 1)
Quarter: 2016Q3

REPORT INFORMATION
  Report Type: Spontaneous
  Country: DE (occurrence: DE)
  Receive Date: 20160714
  Receipt Date: 20160714
  Transmission Date: 20161109
  Serious: Yes (Hospitalization, Other)
  Sender: FDA-Public Use
  Company Number: DE-ACTAVIS-2016-14639

PATIENT
  Age: 65 Year
  Sex: Male

DRUGS (8)
  1. ETOPOSIDE (UNKNOWN) [Suspect]
     Active Substance: ETOPOSIDE
     Indication: MANTLE CELL LYMPHOMA
     Dosage: UNK
     Route: 065
  2. TEMSIROLIMUS [Suspect]
     Active Substance: TEMSIROLIMUS
     Indication: MANTLE CELL LYMPHOMA
     Dosage: UNK
     Route: 065
  3. BENDAMUSTINE (UNKNOWN) [Suspect]
     Active Substance: BENDAMUSTINE
     Indication: MANTLE CELL LYMPHOMA
     Dosage: UNK
     Route: 065
  4. CYTARABINE (UNKNOWN) [Suspect]
     Active Substance: CYTARABINE
     Indication: MANTLE CELL LYMPHOMA
     Dosage: UNK
     Route: 065
  5. DEXAMETHASONE (WATSON LABORATORIES) [Suspect]
     Active Substance: DEXAMETHASONE
     Indication: MANTLE CELL LYMPHOMA
     Dosage: UNK
     Route: 065
  6. CARMUSTINE (UNKNOWN) [Suspect]
     Active Substance: CARMUSTINE
     Indication: MANTLE CELL LYMPHOMA
     Dosage: UNK
     Route: 065
  7. MELPHALAN [Suspect]
     Active Substance: MELPHALAN
     Indication: MANTLE CELL LYMPHOMA
     Dosage: UNK
     Route: 065
  8. RITUXIMAB [Suspect]
     Active Substance: RITUXIMAB
     Indication: MANTLE CELL LYMPHOMA
     Dosage: 375 MG/M2, UNK
     Route: 065

REACTIONS (5)
  - Necrotising fasciitis [Unknown]
  - Sepsis [Unknown]
  - Leukopenia [Unknown]
  - Thrombocytopenia [Unknown]
  - Pneumonia [Unknown]
